FAERS Safety Report 4733154-8 (Version None)
Quarter: 2005Q3

REPORT INFORMATION
  Report Type: 
  Country: None (occurrence: None)
  Receive Date: 20050801
  Receipt Date: 20050801
  Transmission Date: 20060218
  Serious: Yes (Hospitalization)
  Sender: FDA-Public Use
  Company Number: None

PATIENT
  Age: 67 Year
  Sex: Male

DRUGS (11)
  1. LAMOTRIGINE [Suspect]
     Indication: CONVULSION
     Dosage: 100 MG BID
     Dates: start: 20041102
  2. LORTAB [Concomitant]
  3. FOSAMAX [Concomitant]
  4. CITALOPRAM [Concomitant]
  5. FERROUS SULFATE TAB [Concomitant]
  6. HYDROCHLOROTHIAZIDE [Concomitant]
  7. OMEPRAZOLE [Concomitant]
  8. ZOCOR [Concomitant]
  9. OSCAL [Concomitant]
  10. FELODIPINE [Concomitant]
  11. ASPIRIN [Concomitant]

REACTIONS (1)
  - FALL [None]
